FAERS Safety Report 4933942-9 (Version None)
Quarter: 2006Q1

REPORT INFORMATION
  Report Type: 
  Country: None (occurrence: None)
  Receive Date: 20060301
  Receipt Date: 20060214
  Transmission Date: 20060701
  Serious: Yes (Hospitalization)
  Sender: FDA-Public Use
  Company Number: 2006022771

PATIENT

DRUGS (2)
  1. MICRONASE [Suspect]
     Indication: ILL-DEFINED DISORDER
  2. LEVAQUIN [Suspect]
     Indication: ILL-DEFINED DISORDER

REACTIONS (1)
  - HYPOGLYCAEMIA [None]
